FAERS Safety Report 5283988-9 (Version None)
Quarter: 2007Q1

REPORT INFORMATION
  Report Type: 
  Country: None (occurrence: None)
  Receive Date: 20070327
  Receipt Date: 20070315
  Transmission Date: 20070707
  Serious: Yes (Hospitalization)
  Sender: FDA-Public Use
  Company Number: PAR_1365_2007

PATIENT
  Age: 60 Year
  Sex: Male
  Weight: 131.5431 kg

DRUGS (5)
  1. IMIPRAMINE [Suspect]
     Indication: HEADACHE
     Dosage: 10 MG NIGHTLY PO
     Route: 048
     Dates: start: 20050620, end: 20050626
  2. IMIPRAMINE [Suspect]
     Indication: HEADACHE
     Dosage: 20 MG NIGHTLY PO
     Route: 048
     Dates: start: 20050627, end: 20050703
  3. IMIPRAMINE [Suspect]
     Indication: HEADACHE
     Dosage: 30 MG NIGHTLY PO
     Route: 048
     Dates: start: 20050704, end: 20050713
  4. HYDROCHLOROTHIAZIDE [Concomitant]
  5. TYLENOL [Concomitant]

REACTIONS (11)
  - APATHY [None]
  - BENIGN PROSTATIC HYPERPLASIA [None]
  - CHILLS [None]
  - CONFUSIONAL STATE [None]
  - DEPRESSION [None]
  - DRUG INEFFECTIVE [None]
  - DYSURIA [None]
  - IRRITABILITY [None]
  - SUICIDAL IDEATION [None]
  - TEARFULNESS [None]
  - URINARY RETENTION [None]
